FAERS Safety Report 10906895 (Version 1)
Quarter: 2015Q1

REPORT INFORMATION
  Report Type: Spontaneous
  Country: US (occurrence: None)
  Receive Date: 20150309
  Receipt Date: 20150309
  Transmission Date: 20150721
  Serious: Yes (Hospitalization)
  Sender: FDA-Public Use
  Company Number: None

PATIENT
  Age: 66 Year
  Sex: Male
  Weight: 83.1 kg

DRUGS (14)
  1. GLIMEPIRIDE. [Concomitant]
     Active Substance: GLIMEPIRIDE
  2. ATORVASTATIN [Concomitant]
     Active Substance: ATORVASTATIN
  3. ATENOLOL. [Concomitant]
     Active Substance: ATENOLOL
  4. ALBUTEROL CFC FREE [Concomitant]
  5. ALPRAZOLAM. [Concomitant]
     Active Substance: ALPRAZOLAM
  6. ONDANSETRON [Concomitant]
     Active Substance: ONDANSETRON
  7. ROPINIROLE. [Concomitant]
     Active Substance: ROPINIROLE
  8. DOCETAXEL. [Suspect]
     Active Substance: DOCETAXEL
     Indication: LARYNGEAL CANCER
     Route: 042
     Dates: start: 20150218, end: 20150218
  9. PROMETHAZINE [Concomitant]
     Active Substance: PROMETHAZINE\PROMETHAZINE HYDROCHLORIDE
  10. CARBOPLATIN. [Suspect]
     Active Substance: CARBOPLATIN
     Indication: LARYNGEAL CANCER
     Route: 042
     Dates: start: 20150218, end: 20150218
  11. BUPROPION [Concomitant]
     Active Substance: BUPROPION
  12. ACETAMINOPHEN-OXYCODONE [Concomitant]
  13. FENTANYL. [Concomitant]
     Active Substance: FENTANYL
  14. BUSPIRONE [Concomitant]
     Active Substance: BUSPIRONE HYDROCHLORIDE

REACTIONS (1)
  - Pneumonia aspiration [None]

NARRATIVE: CASE EVENT DATE: 20150225
